FAERS Safety Report 17239349 (Version 3)
Quarter: 2020Q2

REPORT INFORMATION
  Report Type: Spontaneous
  Country: HK (occurrence: HK)
  Receive Date: 20200106
  Receipt Date: 20200622
  Transmission Date: 20200713
  Serious: Yes (Hospitalization)
  Sender: FDA-Public Use
  Company Number: HK-NXDC-GLE-0058-2019

PATIENT
  Age: 47 Year
  Sex: Female
  Weight: 46 kg

DRUGS (6)
  1. PANTOPRAZOLE [Concomitant]
     Active Substance: PANTOPRAZOLE
     Indication: PROPHYLAXIS AGAINST GASTROINTESTINAL ULCER
     Dosage: 40MG DAILY
     Route: 042
     Dates: start: 20191107, end: 20191113
  2. GLIOLAN [Suspect]
     Active Substance: AMINOLEVULINIC ACID HYDROCHLORIDE
     Indication: PHOTODYNAMIC DIAGNOSTIC PROCEDURE
     Dosage: 35 MILLIGRAMS/KG (TOTAL DOSE 1500MG)
     Route: 048
     Dates: start: 20191108, end: 20191108
  3. PROPOFOL. [Concomitant]
     Active Substance: PROPOFOL
     Indication: SEDATION
     Dosage: 20-40 MG AS BOLUS INFUSION
     Route: 040
     Dates: start: 20191108, end: 20191108
  4. CEFTRIAXONE. [Concomitant]
     Active Substance: CEFTRIAXONE
     Indication: ANTIBIOTIC PROPHYLAXIS
     Route: 042
     Dates: start: 20191108, end: 20191108
  5. LEVETIRACETEM [Concomitant]
     Indication: SEIZURE
     Dosage: 100 MG EVERY 12 HOURS IV
     Route: 042
     Dates: start: 20191107, end: 20200526
  6. DEXAMETHASONE. [Concomitant]
     Active Substance: DEXAMETHASONE
     Indication: CEREBRAL OEDEMA MANAGEMENT
     Dosage: 4MG Q6 HOURS
     Route: 042
     Dates: start: 20191107, end: 20191109

REACTIONS (5)
  - Off label use [Recovered/Resolved]
  - Lactic acidosis [Recovered/Resolved]
  - Status epilepticus [Recovered/Resolved]
  - Delayed recovery from anaesthesia [Recovered/Resolved]
  - Rhabdomyolysis [Unknown]

NARRATIVE: CASE EVENT DATE: 20191108
